FAERS Safety Report 12844148 (Version 1)
Quarter: 2016Q4

REPORT INFORMATION
  Report Type: Spontaneous
  Country: US (occurrence: US)
  Receive Date: 20161013
  Receipt Date: 20161013
  Transmission Date: 20170207
  Serious: Yes (Hospitalization, Other)
  Sender: FDA-Public Use
  Company Number: US-TEVA-700134ACC

PATIENT
  Age: 37 Year
  Sex: Female
  Weight: 64.92 kg

DRUGS (1)
  1. PARAGARD T 380A [Suspect]
     Active Substance: COPPER
     Indication: CONTRACEPTION
     Dates: start: 20130428, end: 20160812

REACTIONS (8)
  - Device breakage [Recovered/Resolved]
  - Embedded device [Recovered/Resolved]
  - Exposure during pregnancy [Unknown]
  - Vaginal haemorrhage [Unknown]
  - Pregnancy on contraceptive [Unknown]
  - Menstruation delayed [Unknown]
  - Muscle spasms [Unknown]
  - Abortion spontaneous [Recovered/Resolved]

NARRATIVE: CASE EVENT DATE: 20160806
